FAERS Safety Report 8767586 (Version 1)
Quarter: 2012Q4

REPORT INFORMATION
  Report Type: Report from Study
  Country: US (occurrence: US)
  Receive Date: 20120904
  Receipt Date: 20120904
  Transmission Date: 20130627
  Serious: Yes (Death, Hospitalization, Other)
  Sender: FDA-Public Use
  Company Number: US-CELGENEUS-163-21880-12081612

PATIENT
  Age: 60 None
  Sex: Female
  Weight: 56.7 kg

DRUGS (6)
  1. REVLIMID [Suspect]
     Indication: HODGKIN^S LYMPHOMA
     Dosage: 25 Milligram
     Route: 048
     Dates: start: 20120531, end: 20120718
  2. PANOBINOSTAT [Suspect]
     Indication: HODGKIN^S LYMPHOMA
     Dosage: 20 Milligram
     Route: 065
     Dates: start: 20120531, end: 20120722
  3. ASPIRIN [Concomitant]
     Indication: DRUG USE FOR UNKNOWN INDICATION
     Dosage: 81 Milligram
     Route: 065
  4. VALTREX [Concomitant]
     Indication: DRUG USE FOR UNKNOWN INDICATION
     Route: 065
  5. KAY CIEL [Concomitant]
     Indication: DRUG USE FOR UNKNOWN INDICATION
     Route: 065
  6. LEXAPRO [Concomitant]
     Indication: DRUG USE FOR UNKNOWN INDICATION
     Route: 065

REACTIONS (7)
  - Death [Fatal]
  - Pneumonia [Unknown]
  - Sepsis [Unknown]
  - Febrile neutropenia [Unknown]
  - Platelet count decreased [Unknown]
  - Haemoglobin decreased [Unknown]
  - Hodgkin^s disease [Unknown]
